FAERS Safety Report 23668172 (Version 1)
Quarter: 2024Q1

REPORT INFORMATION
  Report Type: Spontaneous
  Country: HU (occurrence: HU)
  Receive Date: 20240325
  Receipt Date: 20240325
  Transmission Date: 20240410
  Serious: Yes (Death, Hospitalization, Other)
  Sender: FDA-Public Use
  Company Number: HU-RECORDATI-2023002740

PATIENT

DRUGS (8)
  1. ISTURISA [Suspect]
     Active Substance: OSILODROSTAT PHOSPHATE
     Indication: Cushing^s syndrome
     Dosage: 2 MILLIGRAM, BID
     Route: 065
     Dates: start: 202207
  2. GLICLAZIDE [Concomitant]
     Active Substance: GLICLAZIDE
     Indication: Product used for unknown indication
     Dosage: 30 MILLIGRAM
  3. GLICLAZIDE [Concomitant]
     Active Substance: GLICLAZIDE
     Dosage: DOSE REDUCED
  4. ZENOFOR [Concomitant]
     Indication: Product used for unknown indication
     Dosage: 1000 MILLIGRAM, BID
  5. RAVALSYO [Concomitant]
     Indication: Product used for unknown indication
     Dosage: 20/160 MILLIGRAM
  6. BISOPROLOL FUMARATE [Concomitant]
     Active Substance: BISOPROLOL FUMARATE
     Indication: Product used for unknown indication
     Dosage: 7.5 MILLIGRAM
  7. VITAMIN D3 [Concomitant]
     Active Substance: CHOLECALCIFEROL
     Indication: Product used for unknown indication
     Dosage: 6-12000, QW
  8. SPIRONOLACTONE [Concomitant]
     Active Substance: SPIRONOLACTONE
     Indication: Hypertension

REACTIONS (6)
  - Death [Fatal]
  - Renal neoplasm [Not Recovered/Not Resolved]
  - Metastases to bone [Not Recovered/Not Resolved]
  - Haemangioma of liver [Not Recovered/Not Resolved]
  - Neuropathy peripheral [Unknown]
  - COVID-19 [Recovered/Resolved]

NARRATIVE: CASE EVENT DATE: 20221201
